FAERS Safety Report 6834355-5 (Version None)
Quarter: 2010Q3

REPORT INFORMATION
  Report Type: 
  Country: None (occurrence: None)
  Receive Date: 20100712
  Receipt Date: 20070419
  Transmission Date: 20110219
  Serious: No
  Sender: FDA-Public Use
  Company Number: US-PFIZER INC-2007032868

PATIENT
  Sex: Female
  Weight: 46.3 kg

DRUGS (17)
  1. CHANTIX [Suspect]
     Indication: SMOKING CESSATION THERAPY
  2. OXYCONTIN [Concomitant]
  3. ACTIQ [Concomitant]
  4. TOPAMAX [Concomitant]
  5. TOPROL-XL [Concomitant]
  6. NORVASC [Concomitant]
  7. FOLTX [Concomitant]
  8. TRAZODONE HYDROCHLORIDE [Concomitant]
  9. RESTORIL [Concomitant]
     Indication: SLEEP DISORDER
  10. VALIUM [Concomitant]
  11. PROMETHAZINE [Concomitant]
     Indication: NAUSEA
  12. RITALIN [Concomitant]
  13. GALENIC /DOCUSATE/SENNA/ [Concomitant]
  14. ADVAIR DISKUS 100/50 [Concomitant]
  15. ALBUTEROL [Concomitant]
     Route: 055
  16. FLUTICASONE PROPIONATE [Concomitant]
  17. ALLERGY MEDICATION [Concomitant]

REACTIONS (4)
  - DEPRESSION [None]
  - DYSPNOEA [None]
  - FATIGUE [None]
  - VOMITING [None]
